FAERS Safety Report 22722764 (Version 4)
Quarter: 2024Q1

REPORT INFORMATION
  Report Type: Spontaneous
  Country: US (occurrence: US)
  Receive Date: 20230719
  Receipt Date: 20240313
  Transmission Date: 20240410
  Serious: Yes (Hospitalization, Other)
  Sender: FDA-Public Use
  Company Number: US-BRISTOL-MYERS SQUIBB COMPANY-2023-101369

PATIENT
  Age: 76 Year
  Sex: Male

DRUGS (2)
  1. REVLIMID [Suspect]
     Active Substance: LENALIDOMIDE
     Indication: Plasma cell myeloma
     Dosage: FREQ: 1 DAILY FOR 21 DAYS AND 7 DAYS OFF
     Route: 048
     Dates: start: 20230620
  2. REVLIMID [Suspect]
     Active Substance: LENALIDOMIDE
     Dosage: FREQUENCY: 1 DAILY FOR 21 DAYS AND 7 DAYS OFF
     Route: 048
     Dates: start: 2023

REACTIONS (5)
  - Atrial fibrillation [Unknown]
  - Loss of consciousness [Unknown]
  - Rash [Recovered/Resolved]
  - Erectile dysfunction [Unknown]
  - Prostate cancer [Unknown]

NARRATIVE: CASE EVENT DATE: 20230101
